FAERS Safety Report 4788894-1 (Version None)
Quarter: 2005Q4

REPORT INFORMATION
  Report Type: 
  Country: None (occurrence: None)
  Receive Date: 20051004
  Receipt Date: 20050926
  Transmission Date: 20060501
  Serious: Yes (Hospitalization)
  Sender: FDA-Public Use
  Company Number: 217185

PATIENT
  Age: 17 Year
  Sex: Male

DRUGS (1)
  1. MABTHERA (RITUXIMAB) CONC FOR SOLUTION FOR INFUSION [Suspect]
     Indication: EVAN'S SYNDROME
     Dosage: 375 MG/M2, INTRAVENOUS
     Route: 042
     Dates: start: 20050727, end: 20050819

REACTIONS (1)
  - PANCYTOPENIA [None]
